FAERS Safety Report 16786245 (Version 8)
Quarter: 2022Q2

REPORT INFORMATION
  Report Type: Spontaneous
  Country: US (occurrence: US)
  Receive Date: 20190909
  Receipt Date: 20220405
  Transmission Date: 20220720
  Serious: Yes (Hospitalization, Other)
  Sender: FDA-Public Use
  Company Number: US-PFIZER INC-2019383415

PATIENT
  Age: 58 Year
  Sex: Female
  Weight: 49.887 kg

DRUGS (10)
  1. RAPAMUNE [Suspect]
     Active Substance: SIROLIMUS
     Indication: Renal transplant
     Dosage: 0.5 MG, 1X/DAY
     Route: 048
     Dates: start: 2002
  2. RAPAMUNE [Suspect]
     Active Substance: SIROLIMUS
     Indication: Pancreas transplant
     Dosage: 2 DF, DAILY (1 MG FOR A WEEK OR TWO)
     Dates: start: 201908, end: 201908
  3. RAPAMUNE [Suspect]
     Active Substance: SIROLIMUS
     Dosage: 0.5 MG, ONCE A DAY
     Route: 048
     Dates: start: 201908
  4. RAPAMUNE [Suspect]
     Active Substance: SIROLIMUS
     Dosage: 1 MG, TABLET DAILY
     Route: 048
  5. TACROLIMUS [Concomitant]
     Active Substance: TACROLIMUS
     Dosage: 1 MG, 1X/DAY (1X DAILY)
     Dates: start: 2002
  6. OMEPRAZOLE [Concomitant]
     Active Substance: OMEPRAZOLE
     Dosage: 20 MG, 2X/DAY (2X DAILY)
     Dates: start: 2002
  7. PAROXETINE [Concomitant]
     Active Substance: PAROXETINE
     Dosage: 30 MG, 1X/DAY (1X DAILY)
     Dates: start: 2002
  8. LEVOTHYROXINE [Concomitant]
     Active Substance: LEVOTHYROXINE
     Dosage: 0.088 MG, 1X/DAY (1X DAILY)
     Dates: start: 2002
  9. ROPINIROLE [Concomitant]
     Active Substance: ROPINIROLE
     Dosage: 4 MG, 2X/DAY (2X DAILY)
     Dates: start: 2019
  10. BREO ELLIPTA [Concomitant]
     Active Substance: FLUTICASONE FUROATE\VILANTEROL TRIFENATATE
     Dosage: 200 UG, 2X/DAY (2X DAILY)
     Dates: start: 2019

REACTIONS (3)
  - Renal transplant failure [Unknown]
  - Off label use [Unknown]
  - Circumstance or information capable of leading to medication error [Unknown]

NARRATIVE: CASE EVENT DATE: 20160101
